FAERS Safety Report 5947853-3 (Version None)
Quarter: 2008Q4

REPORT INFORMATION
  Report Type: 
  Country: None (occurrence: None)
  Receive Date: 20081110
  Receipt Date: 20081110
  Transmission Date: 20090506
  Serious: Yes (Death)
  Sender: FDA-Public Use
  Company Number: None

PATIENT
  Sex: Male
  Weight: 72.4 kg

DRUGS (5)
  1. IRINOTECAN HYDROCHLORIDE [Suspect]
     Indication: GLIOBLASTOMA MULTIFORME
     Dosage: 325MG/M2  DAY 1 IV
     Route: 042
     Dates: start: 20070702
  2. TEMODAR [Suspect]
     Indication: GLIOBLASTOMA MULTIFORME
     Dosage: 200MG/M2 DAYS 1-5 PO
     Route: 048
     Dates: start: 20070702
  3. DILANTIN [Concomitant]
  4. ATIVAN [Concomitant]
  5. DEXAMETHASONE 0.5MG TAB [Concomitant]

REACTIONS (4)
  - CEREBRAL HAEMORRHAGE [None]
  - DYSARTHRIA [None]
  - FLUSHING [None]
  - URINARY INCONTINENCE [None]
